FAERS Safety Report 18597184 (Version 1)
Quarter: 2020Q4

REPORT INFORMATION
  Report Type: Spontaneous
  Country: FR (occurrence: FR)
  Receive Date: 20201209
  Receipt Date: 20201209
  Transmission Date: 20210114
  Serious: Yes (Hospitalization)
  Sender: FDA-Public Use
  Company Number: FR-TEVA-2020-FR-1855681

PATIENT
  Age: 93 Year
  Sex: Female
  Weight: 48 kg

DRUGS (4)
  1. NEBIVOLOL. [Suspect]
     Active Substance: NEBIVOLOL
     Indication: HYPERTENSION
     Dosage: 5 MG
     Route: 048
  2. KARDEGIC [Suspect]
     Active Substance: ASPIRIN DL-LYSINE
     Indication: PERIPHERAL ARTERIAL OCCLUSIVE DISEASE
     Dosage: 75 MG
     Route: 048
  3. LAMALINE (ATROPA BELLADONNA EXTRACT/CAFFEINE/PAPAVER SOMNIFERUM TINCTURE/PARACETAMOL) [Suspect]
     Active Substance: ACETAMINOPHEN\BELLADONNA LEAF\CAFFEINE\OPIUM
     Indication: PAIN
     Route: 048
  4. CANDESARTAN CILEXETIL. [Suspect]
     Active Substance: CANDESARTAN CILEXETIL
     Indication: HYPERTENSION
     Dosage: 16 MG
     Route: 048

REACTIONS (2)
  - Cerebral haemorrhage [Not Recovered/Not Resolved]
  - Fall [Recovered/Resolved]

NARRATIVE: CASE EVENT DATE: 20190201
